FAERS Safety Report 17509419 (Version 1)
Quarter: 2020Q1

REPORT INFORMATION
  Report Type: Spontaneous
  Country: OM (occurrence: OM)
  Receive Date: 20200306
  Receipt Date: 20200306
  Transmission Date: 20200409
  Serious: Yes (Other)
  Sender: FDA-Public Use
  Company Number: OM-ELI_LILLY_AND_COMPANY-OM202003001950

PATIENT
  Age: 64 Year
  Sex: Male

DRUGS (2)
  1. PACLITAXEL. [Concomitant]
     Active Substance: PACLITAXEL
     Indication: GASTRIC CANCER STAGE II
  2. CYRAMZA [Suspect]
     Active Substance: RAMUCIRUMAB
     Indication: GASTRIC CANCER STAGE II
     Dosage: UNK UNK, UNKNOWN
     Route: 065
     Dates: start: 201706, end: 201806

REACTIONS (7)
  - Liver function test abnormal [Unknown]
  - Fatigue [Unknown]
  - Microalbuminuria [Unknown]
  - Neuropathy peripheral [Unknown]
  - Conjunctival haemorrhage [Unknown]
  - Hypothyroidism [Unknown]
  - Epistaxis [Unknown]
